FAERS Safety Report 16416856 (Version 1)
Quarter: 2019Q2

REPORT INFORMATION
  Report Type: Spontaneous
  Country: CN (occurrence: CN)
  Receive Date: 20190611
  Receipt Date: 20190611
  Transmission Date: 20190711
  Serious: Yes (Hospitalization, Other)
  Sender: FDA-Public Use
  Company Number: CN-GLAXOSMITHKLINE-CN2019APC090471

PATIENT

DRUGS (3)
  1. VENTOLIN [Suspect]
     Active Substance: ALBUTEROL SULFATE
     Indication: COUGH
     Dosage: 1.25 ML, TID
     Route: 055
     Dates: start: 20190502, end: 20190509
  2. IPRATROPIUM BROMIDE. [Suspect]
     Active Substance: IPRATROPIUM BROMIDE
     Indication: COUGH
     Dosage: 1 ML, TID
     Route: 055
     Dates: start: 20190508, end: 20190509
  3. IBUPROFEN. [Suspect]
     Active Substance: IBUPROFEN
     Indication: PYREXIA
     Dosage: 1.5 ML, UNK
     Route: 048

REACTIONS (5)
  - Dry skin [Recovered/Resolved]
  - Peripheral coldness [Recovered/Resolved]
  - Hyperhidrosis [Unknown]
  - Tachypnoea [Recovered/Resolved]
  - Lip dry [Recovered/Resolved]

NARRATIVE: CASE EVENT DATE: 20190502
